FAERS Safety Report 19364428 (Version 11)
Quarter: 2024Q1

REPORT INFORMATION
  Report Type: Other
  Country: CA (occurrence: CA)
  Receive Date: 20210602
  Receipt Date: 20240305
  Transmission Date: 20240410
  Serious: Yes (Other)
  Sender: FDA-Public Use
  Company Number: CA-GLENMARK PHARMACEUTICALS-2021GMK054175

PATIENT

DRUGS (106)
  1. GABAPENTIN [Suspect]
     Active Substance: GABAPENTIN
     Indication: Product used for unknown indication
     Dosage: 100 MILLIGRAM
     Route: 065
  2. AMLODIPINE BESYLATE\LISINOPRIL [Suspect]
     Active Substance: AMLODIPINE BESYLATE\LISINOPRIL
     Indication: Product used for unknown indication
     Dosage: 10 MILLIGRAM
     Route: 048
  3. DALFAMPRIDINE [Suspect]
     Active Substance: DALFAMPRIDINE
     Indication: Product used for unknown indication
     Dosage: 10 MILLIGRAM
     Route: 065
  4. AMLODIPINE BESYLATE [Suspect]
     Active Substance: AMLODIPINE BESYLATE
     Indication: Secondary progressive multiple sclerosis
     Dosage: 10 MILLIGRAM
     Route: 048
  5. TECFIDERA [Suspect]
     Active Substance: DIMETHYL FUMARATE
     Indication: Product used for unknown indication
     Dosage: UNK
     Route: 065
  6. AMLODIPINE BESYLATE\LISINOPRIL [Suspect]
     Active Substance: AMLODIPINE BESYLATE\LISINOPRIL
     Indication: Secondary progressive multiple sclerosis
     Dosage: 10 MILLIGRAM
     Route: 048
  7. BACLOFEN [Suspect]
     Active Substance: BACLOFEN
     Indication: Product used for unknown indication
     Dosage: 10 MILLIGRAM
     Route: 048
  8. BACLOFEN [Suspect]
     Active Substance: BACLOFEN
     Dosage: 30 MILLIGRAM, 3 EVERY 1 DAYS
     Route: 065
  9. BACLOFEN [Suspect]
     Active Substance: BACLOFEN
     Dosage: UNK
     Route: 065
  10. BACLOFEN [Suspect]
     Active Substance: BACLOFEN
     Dosage: 30 MILLIGRAM EVERY 3 DAYS
     Route: 065
  11. BACLOFEN [Suspect]
     Active Substance: BACLOFEN
     Dosage: 3 DOSAGE FORM, QD
     Route: 065
  12. BACLOFEN [Suspect]
     Active Substance: BACLOFEN
     Dosage: 30 MILLIGRAM
     Route: 065
  13. BACLOFEN [Suspect]
     Active Substance: BACLOFEN
     Dosage: UNK
     Route: 065
  14. BACLOFEN [Suspect]
     Active Substance: BACLOFEN
     Dosage: 30 DOSAGE FORM, 3 EVERY 1 DAYS
     Route: 065
  15. AMLODIPINE BESYLATE\CANDESARTAN CILEXETIL [Suspect]
     Active Substance: AMLODIPINE BESYLATE\CANDESARTAN CILEXETIL
     Indication: Secondary progressive multiple sclerosis
     Dosage: 10 MILLIGRAM
     Route: 048
  16. BACLOFEN [Suspect]
     Active Substance: BACLOFEN
     Indication: Product used for unknown indication
     Dosage: 30 MILLIGRAM, TID
     Route: 065
  17. BACLOFEN [Suspect]
     Active Substance: BACLOFEN
     Dosage: 10 MILLIGRAM
     Route: 048
  18. BACLOFEN [Suspect]
     Active Substance: BACLOFEN
     Dosage: 30 MILLIGRAM, EVERY 3 DAY
     Route: 065
  19. BISOPROLOL FUMARATE\HYDROCHLOROTHIAZIDE [Suspect]
     Active Substance: BISOPROLOL FUMARATE\HYDROCHLOROTHIAZIDE
     Indication: Product used for unknown indication
     Dosage: UNK
     Route: 048
  20. DOXEPIN HYDROCHLORIDE [Suspect]
     Active Substance: DOXEPIN HYDROCHLORIDE
     Indication: Product used for unknown indication
     Dosage: 6 MILLIGRAM
     Route: 065
  21. LORAZEPAM [Suspect]
     Active Substance: LORAZEPAM
     Indication: Product used for unknown indication
     Dosage: UNK
     Route: 048
  22. MAYZENT [Suspect]
     Active Substance: SIPONIMOD
     Indication: Secondary progressive multiple sclerosis
     Dosage: 3 DOSAGE FORM
     Route: 065
  23. MAYZENT [Suspect]
     Active Substance: SIPONIMOD
     Dosage: UNK
     Route: 048
  24. MAYZENT [Suspect]
     Active Substance: SIPONIMOD
     Dosage: UNK
     Route: 065
  25. MAYZENT [Suspect]
     Active Substance: SIPONIMOD
     Dosage: 3 MILLIGRAM
     Route: 065
  26. PRAMIPEXOLE [Suspect]
     Active Substance: PRAMIPEXOLE\PRAMIPEXOLE DIHYDROCHLORIDE
     Indication: Secondary progressive multiple sclerosis
     Dosage: 0.25 MILLIGRAM
     Route: 048
  27. RABEPRAZOLE [Suspect]
     Active Substance: RABEPRAZOLE
     Indication: Secondary progressive multiple sclerosis
     Dosage: 20 MILLIGRAM
     Route: 048
  28. RABEPRAZOLE [Suspect]
     Active Substance: RABEPRAZOLE
     Dosage: UNK
     Route: 048
  29. RABEPRAZOLE [Suspect]
     Active Substance: RABEPRAZOLE
     Dosage: 20 MILLIGRAM
     Route: 048
  30. DOXEPIN HYDROCHLORIDE [Suspect]
     Active Substance: DOXEPIN HYDROCHLORIDE
     Indication: Product used for unknown indication
     Dosage: 6 MILLIGRAM
     Route: 065
  31. AMLODIPINE MESYLATE [Suspect]
     Active Substance: AMLODIPINE MESYLATE
     Indication: Secondary progressive multiple sclerosis
     Dosage: 10 MILLIGRAM
     Route: 048
  32. PRAMIPEXOLE DIHYDROCHLORIDE [Suspect]
     Active Substance: PRAMIPEXOLE DIHYDROCHLORIDE
     Indication: Secondary progressive multiple sclerosis
     Dosage: 0.25 MILLIGRAM
     Route: 048
  33. PRAMIPEXOLE DIHYDROCHLORIDE [Suspect]
     Active Substance: PRAMIPEXOLE DIHYDROCHLORIDE
     Dosage: 0.25 MILLIGRAM
     Route: 048
  34. REBIF [Suspect]
     Active Substance: INTERFERON BETA-1A
     Indication: Product used for unknown indication
     Dosage: UNK; FORMULATION: SOLUTION SUBCUTANEOUS
     Route: 065
  35. REBIF [Suspect]
     Active Substance: INTERFERON BETA-1A
     Dosage: UNK; FORMULATION: SOLUTION SUBCUTANEOUS
     Route: 065
  36. ROSUVASTATIN CALCIUM [Suspect]
     Active Substance: ROSUVASTATIN CALCIUM
     Indication: Product used for unknown indication
     Dosage: 5 MILLIGRAM
     Route: 048
  37. TAMSULOSIN [Suspect]
     Active Substance: TAMSULOSIN
     Indication: Secondary progressive multiple sclerosis
     Dosage: UNK
     Route: 048
  38. TAMSULOSIN [Suspect]
     Active Substance: TAMSULOSIN
     Dosage: UNK
     Route: 065
  39. TAMSULOSIN [Suspect]
     Active Substance: TAMSULOSIN
     Dosage: UNK
     Route: 048
  40. AMLODIPINE BESYLATE [Suspect]
     Active Substance: AMLODIPINE BESYLATE
     Indication: Secondary progressive multiple sclerosis
     Dosage: 10 MILLIGRAM
     Route: 048
  41. AMLODIPINE BESYLATE [Suspect]
     Active Substance: AMLODIPINE BESYLATE
     Dosage: 10 MILLIGRAM
     Route: 065
  42. TECFIDERA [Suspect]
     Active Substance: DIMETHYL FUMARATE
     Indication: Product used for unknown indication
     Dosage: UNK
     Route: 065
  43. BISOPROLOL [Suspect]
     Active Substance: BISOPROLOL\BISOPROLOL FUMARATE
     Indication: Secondary progressive multiple sclerosis
     Dosage: UNK
     Route: 048
  44. LORAZEPAM [Suspect]
     Active Substance: LORAZEPAM
     Indication: Product used for unknown indication
     Dosage: UNK
     Route: 048
  45. LORAZEPAM [Suspect]
     Active Substance: LORAZEPAM
     Dosage: UNK
     Route: 065
  46. BISOPROLOL [Suspect]
     Active Substance: BISOPROLOL\BISOPROLOL FUMARATE
     Indication: Secondary progressive multiple sclerosis
     Dosage: UNK
     Route: 048
  47. BISOPROLOL [Suspect]
     Active Substance: BISOPROLOL\BISOPROLOL FUMARATE
     Dosage: UNK
     Route: 065
  48. AMLODIPINE BESYLATE\LISINOPRIL [Suspect]
     Active Substance: AMLODIPINE BESYLATE\LISINOPRIL
     Indication: Secondary progressive multiple sclerosis
     Dosage: 10 MILLIGRAM
     Route: 048
  49. REBIF [Suspect]
     Active Substance: INTERFERON BETA-1A
     Indication: Product used for unknown indication
     Dosage: UNK
     Route: 058
  50. REBIF [Suspect]
     Active Substance: INTERFERON BETA-1A
     Dosage: UNK
     Route: 065
  51. LORAZEPAM [Suspect]
     Active Substance: LORAZEPAM
     Indication: Product used for unknown indication
     Dosage: UNK
     Route: 048
  52. AMLODIPINE BESYLATE\CANDESARTAN CILEXETIL [Suspect]
     Active Substance: AMLODIPINE BESYLATE\CANDESARTAN CILEXETIL
     Indication: Secondary progressive multiple sclerosis
     Dosage: 10 MILLIGRAM
     Route: 048
  53. AMLODIPINE BESYLATE\CANDESARTAN CILEXETIL [Suspect]
     Active Substance: AMLODIPINE BESYLATE\CANDESARTAN CILEXETIL
     Dosage: 10 MILLIGRAM
     Route: 048
  54. ROSUVASTATIN CALCIUM [Suspect]
     Active Substance: ROSUVASTATIN CALCIUM
     Indication: Product used for unknown indication
     Dosage: 5 MILLIGRAM
     Route: 048
  55. ROSUVASTATIN CALCIUM [Suspect]
     Active Substance: ROSUVASTATIN CALCIUM
     Dosage: 5 MILLIGRAM
     Route: 048
  56. AMLODIPINE MESYLATE [Suspect]
     Active Substance: AMLODIPINE MESYLATE
     Indication: Secondary progressive multiple sclerosis
     Dosage: 10 MILLIGRAM
     Route: 048
  57. AMLODIPINE [Suspect]
     Active Substance: AMLODIPINE BESYLATE
     Indication: Secondary progressive multiple sclerosis
     Dosage: 10 MILLIGRAM
     Route: 048
  58. BISOPROLOL FUMARATE\HYDROCHLOROTHIAZIDE [Suspect]
     Active Substance: BISOPROLOL FUMARATE\HYDROCHLOROTHIAZIDE
     Indication: Secondary progressive multiple sclerosis
     Dosage: UNK
     Route: 048
  59. ALLOPURINOL;BENZBROMARONE [Concomitant]
     Indication: Product used for unknown indication
     Dosage: 100 MILLIGRAM
     Route: 048
  60. ASPIRIN [Concomitant]
     Active Substance: ASPIRIN
     Indication: Product used for unknown indication
     Dosage: UNK
     Route: 065
  61. ASPIRIN [Concomitant]
     Active Substance: ASPIRIN
     Dosage: 81 MILLIGRAM
     Route: 065
  62. ATIVAN [Concomitant]
     Active Substance: LORAZEPAM
     Indication: Product used for unknown indication
     Dosage: 0.5 MILLIGRAM
     Route: 065
  63. ATIVAN [Concomitant]
     Active Substance: LORAZEPAM
     Dosage: 0.5 MILLIGRAM
     Route: 065
  64. CALCIUM [Concomitant]
     Active Substance: CALCIUM
     Indication: Product used for unknown indication
     Dosage: UNK
     Route: 065
  65. INDAPAMIDE\PERINDOPRIL ARGININE [Concomitant]
     Active Substance: INDAPAMIDE\PERINDOPRIL ARGININE
     Indication: Product used for unknown indication
     Dosage: 4 MILLIGRAM
     Route: 065
  66. INDAPAMIDE\PERINDOPRIL ARGININE [Concomitant]
     Active Substance: INDAPAMIDE\PERINDOPRIL ARGININE
     Dosage: 8 MILLIGRAM
     Route: 065
  67. INDAPAMIDE\PERINDOPRIL ARGININE [Concomitant]
     Active Substance: INDAPAMIDE\PERINDOPRIL ARGININE
     Dosage: 8 MILLIGRAM
     Route: 065
  68. DALFAMPRIDINE [Concomitant]
     Active Substance: DALFAMPRIDINE
     Indication: Product used for unknown indication
     Dosage: 10 MILLIGRAM
     Route: 065
  69. DALFAMPRIDINE [Concomitant]
     Active Substance: DALFAMPRIDINE
     Dosage: UNK
     Route: 065
  70. RABEPRAZOLE SODIUM [Concomitant]
     Active Substance: RABEPRAZOLE SODIUM
     Indication: Product used for unknown indication
     Dosage: UNK
     Route: 065
  71. VITAMIN D3 [Concomitant]
     Active Substance: CHOLECALCIFEROL
     Indication: Product used for unknown indication
     Dosage: UNK
     Route: 065
  72. VITAMIN D3 [Concomitant]
     Active Substance: CHOLECALCIFEROL
     Dosage: UNK
     Route: 065
  73. ACETYLSALICYLIC ACID;CODEINE [Concomitant]
     Indication: Product used for unknown indication
     Dosage: 81 MILLIGRAM
     Route: 065
  74. ACETYLSALICYLIC ACID;CODEINE [Concomitant]
     Dosage: 81 MILLIGRAM
     Route: 065
  75. ASPIRIN [Concomitant]
     Active Substance: ASPIRIN
     Indication: Product used for unknown indication
     Dosage: UNK
     Route: 065
  76. ASPIRIN [Concomitant]
     Active Substance: ASPIRIN
     Dosage: UNK
     Route: 065
  77. ASPIRIN [Concomitant]
     Active Substance: ASPIRIN
     Dosage: 81 MILLIGRAM
     Route: 065
  78. ASPIRIN [Concomitant]
     Active Substance: ASPIRIN
     Dosage: UNK
     Route: 065
  79. ASPIRIN [Concomitant]
     Active Substance: ASPIRIN
     Dosage: UNK
     Route: 065
  80. VITAMIN D3 [Concomitant]
     Active Substance: CHOLECALCIFEROL
     Indication: Product used for unknown indication
     Dosage: UNK
     Route: 065
  81. VITAMIN D3 [Concomitant]
     Active Substance: CHOLECALCIFEROL
     Dosage: UNK
     Route: 065
  82. ALLOPURINOL [Concomitant]
     Active Substance: ALLOPURINOL
     Indication: Product used for unknown indication
     Dosage: UNK
     Route: 048
  83. ALLOPURINOL [Concomitant]
     Active Substance: ALLOPURINOL
     Dosage: 100 MILLIGRAM
     Route: 065
  84. CODEINE [Concomitant]
     Active Substance: CODEINE
     Indication: Product used for unknown indication
     Dosage: UNK
     Route: 065
  85. ALLOPURINOL;BENZBROMARONE [Concomitant]
     Indication: Product used for unknown indication
     Dosage: 100 MILLIGRAM
     Route: 048
  86. ALLOPURINOL;BENZBROMARONE [Concomitant]
     Dosage: 100 MILLIGRAM
     Route: 065
  87. ALLOPURINOL;BENZBROMARONE [Concomitant]
     Dosage: 100 MILLIGRAM
     Route: 065
  88. INDAPAMIDE\PERINDOPRIL ARGININE [Concomitant]
     Active Substance: INDAPAMIDE\PERINDOPRIL ARGININE
     Indication: Product used for unknown indication
     Dosage: 4 MILLIGRAM
     Route: 065
  89. DALFAMPRIDINE [Concomitant]
     Active Substance: DALFAMPRIDINE
     Indication: Product used for unknown indication
     Dosage: 10 MILLIGRAM
     Route: 065
  90. VITAMIN D3 [Concomitant]
     Active Substance: CHOLECALCIFEROL
     Indication: Product used for unknown indication
     Dosage: UNK
     Route: 065
  91. ATIVAN [Concomitant]
     Active Substance: LORAZEPAM
     Indication: Product used for unknown indication
     Route: 065
  92. ATIVAN [Concomitant]
     Active Substance: LORAZEPAM
     Dosage: 0.5 MILLIGRAM
     Route: 065
  93. CALCIUM CARBONATE [Concomitant]
     Active Substance: CALCIUM CARBONATE
     Indication: Product used for unknown indication
     Dosage: UNK
     Route: 065
  94. CYANOCOBALAMIN [Concomitant]
     Active Substance: CYANOCOBALAMIN
     Indication: Product used for unknown indication
     Route: 065
  95. ALLOPURINOL;BENZIODARONE [Concomitant]
     Indication: Product used for unknown indication
     Dosage: 100 MILLIGRAM
     Route: 048
  96. CALCIUM GLUCONATE [Concomitant]
     Active Substance: CALCIUM GLUCONATE
     Indication: Product used for unknown indication
     Dosage: UNK
     Route: 065
  97. INDAPAMIDE\PERINDOPRIL ERBUMINE [Concomitant]
     Active Substance: INDAPAMIDE\PERINDOPRIL ERBUMINE
     Indication: Product used for unknown indication
     Dosage: 4 MILLIGRAM
     Route: 065
  98. AMLODIPINE BESYLATE [Concomitant]
     Active Substance: AMLODIPINE BESYLATE
     Indication: Product used for unknown indication
     Dosage: UNK
     Route: 065
  99. VITAMIN B COMPLEX [Concomitant]
     Active Substance: CYANOCOBALAMIN\DEXPANTHENOL\NIACINAMIDE\PYRIDOXINE HYDROCHLORIDE\RIBOFLAVIN 5^-PHOSPHATE SODIUM\THIA
     Indication: Product used for unknown indication
     Dosage: UNK
     Route: 065
  100. CYANOCOBALAMIN [Concomitant]
     Active Substance: CYANOCOBALAMIN
     Indication: Product used for unknown indication
     Dosage: UNK
     Route: 065
  101. CYANOCOBALAMIN [Concomitant]
     Active Substance: CYANOCOBALAMIN
     Indication: Product used for unknown indication
     Dosage: UNK
     Route: 065
  102. PERINDOPRIL ARGININE [Concomitant]
     Active Substance: PERINDOPRIL ARGININE
     Indication: Product used for unknown indication
     Dosage: 4 MILLIGRAM
     Route: 048
  103. CALCIUM D [CALCIUM CARBONATE;COLECALCIFEROL] [Concomitant]
     Indication: Product used for unknown indication
     Dosage: UNK
     Route: 065
  104. COBAMAMIDE [Concomitant]
     Active Substance: COBAMAMIDE
     Indication: Product used for unknown indication
     Dosage: UNK
     Route: 065
  105. TEMAZEPAM [Suspect]
     Active Substance: TEMAZEPAM
  106. TEMAZEPAM [Suspect]
     Active Substance: TEMAZEPAM

REACTIONS (26)
  - Balance disorder [Unknown]
  - Central nervous system lesion [Unknown]
  - Gait spastic [Unknown]
  - Hypertonic bladder [Unknown]
  - Multiple sclerosis relapse [Unknown]
  - Muscle spasticity [Unknown]
  - Needle fatigue [Unknown]
  - Relapsing-remitting multiple sclerosis [Unknown]
  - Product use in unapproved indication [Unknown]
  - Nocturia [Unknown]
  - Pollakiuria [Unknown]
  - Monoparesis [Unknown]
  - Bradycardia [Unknown]
  - Micturition urgency [Unknown]
  - Pain [Unknown]
  - Hypoaesthesia [Unknown]
  - Gait disturbance [Unknown]
  - Insomnia [Unknown]
  - Fall [Unknown]
  - Memory impairment [Unknown]
  - Movement disorder [Unknown]
  - Dysarthria [Unknown]
  - Dizziness [Unknown]
  - Ataxia [Unknown]
  - Erectile dysfunction [Unknown]
  - Anxiety [Unknown]
